FAERS Safety Report 9816039 (Version 1)
Quarter: 2014Q1

REPORT INFORMATION
  Report Type: Spontaneous
  Country: US (occurrence: US)
  Receive Date: 20140114
  Receipt Date: 20140114
  Transmission Date: 20141002
  Serious: Yes (Death)
  Sender: FDA-Public Use
  Company Number: US-PFIZER INC-2014006740

PATIENT
  Age: 47 Year
  Sex: Male

DRUGS (2)
  1. OXYCODONE HYDROCHLORIDE [Suspect]
     Route: 048
  2. ALPRAZOLAM [Suspect]
     Route: 048

REACTIONS (1)
  - Drug abuse [Fatal]
